FAERS Safety Report 10302060 (Version 3)
Quarter: 2014Q3

REPORT INFORMATION
  Report Type: Spontaneous
  Country: GB (occurrence: None)
  Receive Date: 20140709
  Receipt Date: 20140814
  Transmission Date: 20150326
  Serious: Yes (Disabling, Other)
  Sender: FDA-Public Use
  Company Number: AUR-APL-2014-07202

PATIENT
  Age: 75 Year
  Sex: Male
  Weight: 88.9 kg

DRUGS (14)
  1. GABAPENTIN. [Suspect]
     Active Substance: GABAPENTIN
     Indication: ANALGESIC THERAPY
     Route: 048
     Dates: start: 20140106, end: 20140109
  2. TRAMADOL [Suspect]
     Active Substance: TRAMADOL
     Route: 048
     Dates: start: 20131229, end: 20140106
  3. NAPROXEN 500MG (NAPROXEN) UNKNOWN, 500MG [Suspect]
     Active Substance: NAPROXEN
     Indication: ASTHENIA
     Route: 048
     Dates: start: 20140102, end: 20140306
  4. AMITRIPTYLINE (AMITRIPTYLINE) [Suspect]
     Active Substance: AMITRIPTYLINE
     Indication: SLEEP DISORDER
     Route: 048
     Dates: start: 20140115, end: 20140417
  5. TRAMADOL [Suspect]
     Active Substance: TRAMADOL
     Indication: ARTHRALGIA
     Route: 048
     Dates: start: 20131229, end: 20140106
  6. GABAPENTIN. [Suspect]
     Active Substance: GABAPENTIN
     Indication: FALL
     Route: 048
     Dates: start: 20140106, end: 20140109
  7. TRAMADOL [Suspect]
     Active Substance: TRAMADOL
     Indication: JOINT INJURY
     Route: 048
     Dates: start: 20131229, end: 20140106
  8. TRAMADOL [Suspect]
     Active Substance: TRAMADOL
     Indication: PAIN IN EXTREMITY
     Route: 048
     Dates: start: 20131229, end: 20140106
  9. NAPROXEN 500MG (NAPROXEN) UNKNOWN, 500MG [Suspect]
     Active Substance: NAPROXEN
     Indication: ARTHRALGIA
     Route: 048
     Dates: start: 20140102, end: 20140306
  10. OMEPRAZOLE. [Suspect]
     Active Substance: OMEPRAZOLE
     Indication: PROPHYLAXIS
     Route: 048
     Dates: start: 20140102
  11. NAPROXEN 500MG (NAPROXEN) UNKNOWN, 500MG [Suspect]
     Active Substance: NAPROXEN
     Indication: INFLAMMATION
     Route: 048
     Dates: start: 20140102, end: 20140306
  12. CODEINE [Suspect]
     Active Substance: CODEINE
     Indication: PAIN
     Dosage: 15 MG ORAL.
     Route: 048
     Dates: start: 20140110, end: 20140215
  13. DIAZEPAM (DIAZEPAM) [Suspect]
     Active Substance: DIAZEPAM
     Indication: MUSCLE RELAXANT THERAPY
     Route: 048
     Dates: start: 20140104, end: 20140105
  14. TRAMADOL [Suspect]
     Active Substance: TRAMADOL
     Indication: ASTHENIA
     Route: 048
     Dates: start: 20131229, end: 20140106

REACTIONS (25)
  - Apraxia [None]
  - Dry mouth [None]
  - Irritability [None]
  - Muscle disorder [None]
  - Motor dysfunction [None]
  - Delirium [None]
  - Insomnia [None]
  - Speech disorder [None]
  - Bladder disorder [None]
  - Disturbance in attention [None]
  - Memory impairment [None]
  - Hallucination [None]
  - Abdominal pain upper [None]
  - Cognitive disorder [None]
  - Amnesia [None]
  - Confusional state [None]
  - Coordination abnormal [None]
  - Gait disturbance [None]
  - Drug intolerance [None]
  - Medication error [None]
  - Depression [None]
  - Anxiety [None]
  - Delusion [None]
  - Abulia [None]
  - Nightmare [None]

NARRATIVE: CASE EVENT DATE: 20131229
